FAERS Safety Report 9548230 (Version 2)
Quarter: 2013Q4

REPORT INFORMATION
  Report Type: Spontaneous
  Country: US (occurrence: US)
  Receive Date: 20130924
  Receipt Date: 20131009
  Transmission Date: 20140711
  Serious: Yes (Death, Hospitalization)
  Sender: FDA-Public Use
  Company Number: US-BAXTER-2013BAX036515

PATIENT
  Age: 57 Year
  Sex: Male

DRUGS (2)
  1. DIANEAL LOW CALCIUM [Suspect]
     Indication: PERITONEAL DIALYSIS
     Dosage: 4 BAGS
     Route: 033
     Dates: start: 201206, end: 20130916
  2. EXTRANEAL [Suspect]
     Indication: PERITONEAL DIALYSIS
     Dosage: 1 BAG
     Route: 033
     Dates: start: 201206, end: 20130916

REACTIONS (4)
  - Cardiac arrest [Fatal]
  - Aspiration [Fatal]
  - Hip fracture [Unknown]
  - Fall [Unknown]
